FAERS Safety Report 11061660 (Version 2)
Quarter: 2015Q2

REPORT INFORMATION
  Report Type: Spontaneous
  Country: FR (occurrence: FR)
  Receive Date: 20150424
  Receipt Date: 20150515
  Transmission Date: 20150821
  Serious: Yes (Hospitalization, Other)
  Sender: FDA-Public Use
  Company Number: FR-ELI_LILLY_AND_COMPANY-FR201504003907

PATIENT
  Age: 57 Year
  Sex: Male

DRUGS (7)
  1. CYMBALTA [Suspect]
     Active Substance: DULOXETINE HYDROCHLORIDE
     Dosage: 30 MG, QD
     Route: 048
  2. RISPERDAL CONSTA [Concomitant]
     Active Substance: RISPERIDONE
     Dosage: 1 DF, 2/M
     Route: 030
  3. SEROPLEX [Concomitant]
     Active Substance: ESCITALOPRAM OXALATE
     Indication: DEPRESSION
     Dosage: UNK
     Dates: end: 20141229
  4. DEPAMIDE [Concomitant]
     Active Substance: VALPROMIDE
     Dosage: UNK
     Route: 048
  5. CYMBALTA [Suspect]
     Active Substance: DULOXETINE HYDROCHLORIDE
     Indication: DEPRESSION
     Dosage: 30 MG, QD
     Route: 048
     Dates: start: 20141229, end: 20150108
  6. ZOPICLONE [Concomitant]
     Active Substance: ZOPICLONE
     Dosage: UNK
  7. XANAX [Concomitant]
     Active Substance: ALPRAZOLAM
     Dosage: UNK
     Route: 048

REACTIONS (8)
  - Hyponatraemia [Unknown]
  - Hypokalaemia [Unknown]
  - Confusional state [Unknown]
  - Evans syndrome [Unknown]
  - Hepatocellular injury [Unknown]
  - Cholestasis [Unknown]
  - Immune thrombocytopenic purpura [Not Recovered/Not Resolved]
  - Gitelman^s syndrome [Unknown]

NARRATIVE: CASE EVENT DATE: 20150106
